FAERS Safety Report 6441989-9 (Version None)
Quarter: 2009Q4

REPORT INFORMATION
  Report Type: 
  Country: None (occurrence: None)
  Receive Date: 20091116
  Receipt Date: 20090625
  Transmission Date: 20100525
  Serious: Yes (Other)
  Sender: FDA-Public Use
  Company Number: US-PFIZER INC-2004112647

PATIENT
  Sex: Female

DRUGS (2)
  1. PREMPRO [Suspect]
     Indication: HORMONE REPLACEMENT THERAPY
     Dosage: 0.625/2.5MG
     Dates: start: 19950101, end: 19990401
  2. SYNTHROID [Concomitant]
     Dosage: UNK
     Dates: start: 19500101

REACTIONS (1)
  - BREAST CANCER FEMALE [None]
